FAERS Safety Report 5391257-1 (Version None)
Quarter: 2007Q3

REPORT INFORMATION
  Report Type: 
  Country: None (occurrence: None)
  Receive Date: 20070717
  Receipt Date: 20070702
  Transmission Date: 20080115
  Serious: Yes (Other)
  Sender: FDA-Public Use
  Company Number: 015927

PATIENT
  Age: 27 Year
  Sex: Female

DRUGS (10)
  1. SERTRALINE HCL [Suspect]
     Indication: ANXIETY
  2. SERTRALINE HCL [Suspect]
     Indication: OBSESSIVE-COMPULSIVE DISORDER
  3. VENLAFAXINE HCL [Suspect]
     Indication: ANXIETY
     Dosage: 75 MG, QD; 75 MG QM, 37.5 MG PM
  4. VENLAFAXINE HCL [Suspect]
     Indication: OBSESSIVE-COMPULSIVE DISORDER
     Dosage: 75 MG, QD; 75 MG QM, 37.5 MG PM
  5. CLOMIPRAMINE HCL [Suspect]
     Indication: ANXIETY
  6. CLOMIPRAMINE HCL [Suspect]
     Indication: OBSESSIVE-COMPULSIVE DISORDER
  7. LORAZEPAM [Concomitant]
  8. PAROXETINE [Concomitant]
  9. CLONAZEPAM [Concomitant]
  10. OLANZAPINE [Concomitant]

REACTIONS (4)
  - CONTUSION [None]
  - ECCHYMOSIS [None]
  - PLATELET AGGREGATION ABNORMAL [None]
  - TRAUMATIC HAEMATOMA [None]
